FAERS Safety Report 24877135 (Version 1)
Quarter: 2025Q1

REPORT INFORMATION
  Report Type: Spontaneous
  Country: NL (occurrence: NL)
  Receive Date: 20250123
  Receipt Date: 20250123
  Transmission Date: 20250408
  Serious: Yes (Other)
  Sender: REGENERON
  Company Number: None

PATIENT
  Age: 76 Year
  Sex: Female

DRUGS (1)
  1. EYLEA [Suspect]
     Active Substance: AFLIBERCEPT
     Indication: Diabetic retinal oedema
     Dosage: 1 DF, Q4WK, SOLUTION FOR INJECTION, 40MG/ML
     Route: 031
     Dates: start: 20240612, end: 20240716

REACTIONS (1)
  - Toxic anterior segment syndrome [Recovered/Resolved]
